FAERS Safety Report 13543288 (Version 7)
Quarter: 2017Q3

REPORT INFORMATION
  Report Type: Spontaneous
  Country: DE (occurrence: DE)
  Receive Date: 20170514
  Receipt Date: 20170925
  Transmission Date: 20171127
  Serious: Yes (Life-Threatening, Hospitalization, Disabling)
  Sender: FDA-Public Use
  Company Number: DE-ROCHE-1933806

PATIENT
  Age: 63 Year
  Sex: Male

DRUGS (2)
  1. ACTILYSE [Suspect]
     Active Substance: ALTEPLASE
     Indication: CEREBRAL ISCHAEMIA
     Route: 042
     Dates: start: 20170428
  2. RAMIPRIL. [Concomitant]
     Active Substance: RAMIPRIL
     Indication: HYPERTENSION
     Route: 065

REACTIONS (7)
  - Swollen tongue [Recovered/Resolved]
  - Intraventricular haemorrhage [Not Recovered/Not Resolved]
  - Angioedema [Recovering/Resolving]
  - Erythema [Recovered/Resolved]
  - Pneumonia aspiration [Recovered/Resolved]
  - Cerebral haemorrhage [Not Recovered/Not Resolved]
  - Product quality issue [Unknown]

NARRATIVE: CASE EVENT DATE: 20170428
